FAERS Safety Report 14008899 (Version 5)
Quarter: 2018Q1

REPORT INFORMATION
  Report Type: Spontaneous
  Country: IT (occurrence: IT)
  Receive Date: 20170925
  Receipt Date: 20180125
  Transmission Date: 20180508
  Serious: Yes (Hospitalization)
  Sender: FDA-Public Use
  Company Number: IT-TEVA-807865ACC

PATIENT
  Age: 80 Year
  Sex: Female

DRUGS (4)
  1. LORAZEPAM. [Suspect]
     Active Substance: LORAZEPAM
     Indication: INSOMNIA
     Dosage: 1 MILLIGRAM DAILY;
     Route: 048
     Dates: end: 20170825
  2. ESOPRAL - 40 MG COMPRESSE GASTRORESISTENTI [Concomitant]
     Indication: PRODUCT USED FOR UNKNOWN INDICATION
     Route: 048
  3. PRAZENE - 20 MG COMPRESSE - PFIZER ITALIA S.R.L. [Suspect]
     Active Substance: PRAZEPAM
     Indication: ANXIETY
     Dosage: 20 MILLIGRAM DAILY;
     Route: 048
     Dates: end: 20170825
  4. ORAMORPH - 20 MG/ML SOLUZIONE ORALE [Suspect]
     Active Substance: MORPHINE SULFATE
     Indication: ARTHRALGIA
     Dosage: AS NECESSARY
     Route: 048
     Dates: start: 20170812, end: 20170825

REACTIONS (7)
  - Respiratory failure [Recovering/Resolving]
  - Toxicity to various agents [Recovering/Resolving]
  - Hyperhidrosis [Recovering/Resolving]
  - Miosis [Recovering/Resolving]
  - Bradypnoea [Recovering/Resolving]
  - Hypercapnia [Recovering/Resolving]
  - Oxygen saturation [Recovering/Resolving]

NARRATIVE: CASE EVENT DATE: 20170825
